FAERS Safety Report 20847949 (Version 1)
Quarter: 2022Q2

REPORT INFORMATION
  Report Type: Report from Study
  Country: US (occurrence: US)
  Receive Date: 20220519
  Receipt Date: 20220519
  Transmission Date: 20220721
  Serious: No
  Sender: FDA-Public Use
  Company Number: US-VANDA PHARMACEUTICALS, INC-2021ILOUS001854

PATIENT
  Sex: Female

DRUGS (2)
  1. FANAPT [Suspect]
     Active Substance: ILOPERIDONE
     Indication: Psychotic disorder
     Dosage: 1 MILLIGRAM, BID
     Dates: start: 202108
  2. FANAPT [Suspect]
     Active Substance: ILOPERIDONE
     Dosage: 2 MILLIGRAM, BID

REACTIONS (5)
  - Irritability [Unknown]
  - Increased appetite [Unknown]
  - Fatigue [Unknown]
  - Product dose omission issue [Unknown]
  - Off label use [Unknown]
